FAERS Safety Report 4562545-3 (Version None)
Quarter: 2005Q1

REPORT INFORMATION
  Report Type: 
  Country: None (occurrence: None)
  Receive Date: 20050124
  Receipt Date: 20050111
  Transmission Date: 20050727
  Serious: Yes (Other)
  Sender: FDA-Public Use
  Company Number: 140736USA

PATIENT
  Age: 70 Year
  Sex: Female
  Weight: 73.9363 kg

DRUGS (5)
  1. ADIPEX-P [Suspect]
     Indication: WEIGHT CONTROL
     Dosage: 37.5 MILLIGRAM QD; ORAL
     Route: 048
  2. PROZAC [Concomitant]
  3. GLUCOPHAGE [Concomitant]
  4. AVALIDE [Concomitant]
  5. PRAVACHOL [Concomitant]

REACTIONS (5)
  - ACCIDENTAL OVERDOSE [None]
  - ELECTROCARDIOGRAM ST SEGMENT ABNORMAL [None]
  - INSOMNIA [None]
  - TACHYCARDIA [None]
  - VOMITING [None]
